FAERS Safety Report 14135045 (Version 3)
Quarter: 2017Q4

REPORT INFORMATION
  Report Type: Spontaneous
  Country: IT (occurrence: IT)
  Receive Date: 20171027
  Receipt Date: 20171215
  Transmission Date: 20180321
  Serious: Yes (Other)
  Sender: FDA-Public Use
  Company Number: IT-TEVA-818806ACC

PATIENT
  Sex: Female

DRUGS (1)
  1. MYOCET - TEVA B.V. (LIPOSOMAL DOXORUBICIN HYDROCHLORIDE) [Suspect]
     Active Substance: DOXORUBICIN HYDROCHLORIDE
     Indication: METAPLASTIC BREAST CARCINOMA
     Route: 042
     Dates: start: 20170321, end: 20170711

REACTIONS (1)
  - Disease progression [Unknown]
